FAERS Safety Report 5921603-9 (Version None)
Quarter: 2008Q4

REPORT INFORMATION
  Report Type: 
  Country: None (occurrence: None)
  Receive Date: 20081017
  Receipt Date: 20081008
  Transmission Date: 20090506
  Serious: Yes (Death, Life-Threatening, Other)
  Sender: FDA-Public Use
  Company Number: GB-JNJFOC-20081002141

PATIENT
  Sex: Female
  Weight: 76 kg

DRUGS (9)
  1. REMICADE [Suspect]
     Route: 042
  2. REMICADE [Suspect]
     Indication: RHEUMATOID ARTHRITIS
     Route: 042
  3. METHOTREXATE SODIUM [Concomitant]
  4. FOLATE [Concomitant]
  5. HYDROXYCHLOROQUINE [Concomitant]
  6. MAXOLON [Concomitant]
  7. ACETAMINOPHEN [Concomitant]
  8. TRAMADOL HCL [Concomitant]
  9. VIOXX [Concomitant]

REACTIONS (1)
  - DEATH [None]
